FAERS Safety Report 18902083 (Version 1)
Quarter: 2021Q1

REPORT INFORMATION
  Report Type: Spontaneous
  Country: US (occurrence: US)
  Receive Date: 20210216
  Receipt Date: 20210216
  Transmission Date: 20210420
  Serious: Yes (Hospitalization)
  Sender: FDA-Public Use
  Company Number: US-ELI_LILLY_AND_COMPANY-US202102004994

PATIENT
  Sex: Female

DRUGS (3)
  1. VERZENIO [Suspect]
     Active Substance: ABEMACICLIB
     Indication: BREAST CANCER
     Dosage: 150 MG, BID
     Route: 048
  2. XELODA [Concomitant]
     Active Substance: CAPECITABINE
     Indication: BREAST CANCER
     Dosage: UNK UNK, UNKNOWN
     Route: 065
  3. TUKYSA [Concomitant]
     Active Substance: TUCATINIB
     Indication: BREAST CANCER
     Dosage: UNK UNK, UNKNOWN
     Route: 065

REACTIONS (1)
  - Gastrointestinal haemorrhage [Recovered/Resolved]
